FAERS Safety Report 14119679 (Version 1)
Quarter: 2017Q4

REPORT INFORMATION
  Report Type: Spontaneous
  Country: TW (occurrence: TW)
  Receive Date: 20171024
  Receipt Date: 20171024
  Transmission Date: 20180321
  Serious: Yes (Death)
  Sender: FDA-Public Use
  Company Number: TW-ROCHE-2010794

PATIENT
  Age: 76 Year
  Sex: Male
  Weight: 58.5 kg

DRUGS (7)
  1. AMLODIPINE [Concomitant]
     Active Substance: AMLODIPINE BESYLATE
     Indication: HYPERTENSION
     Route: 048
     Dates: start: 20120822, end: 201706
  2. CYCLOSPORIN [Concomitant]
     Active Substance: CYCLOSPORINE
     Route: 048
     Dates: start: 20110511, end: 201706
  3. FLUDIAZEPAM [Concomitant]
     Active Substance: FLUDIAZEPAM
     Indication: MUSCLE RELAXANT THERAPY
     Route: 048
     Dates: start: 20141104, end: 20170609
  4. PREDNISOLONE. [Concomitant]
     Active Substance: PREDNISOLONE
     Indication: INFLAMMATION
     Route: 048
     Dates: start: 20141104
  5. MABTHERA [Suspect]
     Active Substance: RITUXIMAB
     Indication: RHEUMATOID ARTHRITIS
     Dosage: DATE OF MOST RECENT DOSE OF RITUXIMAB WAS 16/MAR/2017.
     Route: 041
     Dates: start: 20130930, end: 20170316
  6. ETOFENAMATE [Concomitant]
     Active Substance: ETOFENAMATE
     Indication: INFLAMMATION
     Route: 061
     Dates: start: 20170509, end: 20170609
  7. ZOLPIDEM [Concomitant]
     Active Substance: ZOLPIDEM\ZOLPIDEM TARTRATE
     Route: 048
     Dates: start: 20140617, end: 20170609

REACTIONS (2)
  - Neoplasm malignant [Fatal]
  - Drug ineffective [Unknown]

NARRATIVE: CASE EVENT DATE: 20170504
